FAERS Safety Report 8007063-5 (Version None)
Quarter: 2011Q4

REPORT INFORMATION
  Report Type: 
  Country: None (occurrence: None)
  Receive Date: 20111227
  Receipt Date: 20111221
  Transmission Date: 20120403
  Serious: Yes (Other)
  Sender: FDA-Public Use
  Company Number: AU-JNJFOC-20111209387

PATIENT
  Age: 32 Year
  Sex: Male

DRUGS (2)
  1. ROGAINE EXTRA STRENGTH (FOR MEN) [Suspect]
     Route: 061
  2. ROGAINE EXTRA STRENGTH (FOR MEN) [Suspect]
     Indication: ALOPECIA
     Dosage: MORNING AND NIGHT AS PER PACKAGING USED FOR 2-3 WEEKS
     Route: 061
     Dates: end: 20111203

REACTIONS (2)
  - PALPITATIONS [None]
  - NERVE COMPRESSION [None]
